FAERS Safety Report 24358549 (Version 1)
Quarter: 2024Q3

REPORT INFORMATION
  Report Type: Spontaneous
  Country: PE (occurrence: PE)
  Receive Date: 20240924
  Receipt Date: 20240924
  Transmission Date: 20241016
  Serious: Yes (Other)
  Sender: PFIZER
  Company Number: PE-PFIZER INC-PV202400124762

PATIENT
  Sex: Female

DRUGS (1)
  1. IBRANCE [Suspect]
     Active Substance: PALBOCICLIB
     Dosage: 125 MG, CYCLIC (21 DAYS ON, 7 DAYS REST)
     Route: 048

REACTIONS (4)
  - Hypothyroidism [Unknown]
  - Haemoglobin decreased [Unknown]
  - Alopecia [Unknown]
  - Thyroid mass [Unknown]
